FAERS Safety Report 9249368 (Version 2)
Quarter: 2013Q2

REPORT INFORMATION
  Report Type: Spontaneous
  Country: US (occurrence: US)
  Receive Date: 20130423
  Receipt Date: 20130612
  Transmission Date: 20140414
  Serious: Yes (Hospitalization)
  Sender: FDA-Public Use
  Company Number: US-ASTRAZENECA-2013SE25211

PATIENT
  Age: 65 Year
  Sex: Female
  Weight: 73.9 kg

DRUGS (11)
  1. SYMBICORT PMDI [Suspect]
     Indication: DYSPNOEA
     Dosage: 160 MCG TWO PUFFS TWO TIMES A DAY
     Route: 055
     Dates: start: 201210
  2. SYMBICORT PMDI [Suspect]
     Indication: DYSPNOEA
     Dosage: 80 MCG TWO PUFFS TWO TIMES A DAY
     Route: 055
     Dates: start: 20130404
  3. VITAMINS [Concomitant]
  4. ZYRTEC D [Concomitant]
     Indication: DYSPNOEA
  5. SINGULAR [Concomitant]
     Indication: DYSPNOEA
  6. PREDNISONE [Concomitant]
     Indication: DYSPNOEA
     Dosage: TITRATED AND TAKING 7 MG DAILY
  7. PROBIOTICS [Concomitant]
     Indication: CANDIDA INFECTION
  8. VARIOUS MEDICATIONS [Concomitant]
  9. ALL KINDS OF INHALERS [Concomitant]
  10. ADVAIR [Concomitant]
     Dosage: 250
  11. ADVAIR [Concomitant]
     Dosage: 500

REACTIONS (8)
  - Alveolitis allergic [Unknown]
  - Apparent death [Recovering/Resolving]
  - Pulmonary function test decreased [Recovering/Resolving]
  - Off label use [Unknown]
  - Off label use [Unknown]
  - Oropharyngeal candidiasis [Unknown]
  - Cough [Unknown]
  - Drug dose omission [Unknown]
